FAERS Safety Report 20772045 (Version 2)
Quarter: 2022Q2

REPORT INFORMATION
  Report Type: Spontaneous
  Country: CN (occurrence: CN)
  Receive Date: 20220501
  Receipt Date: 20220607
  Transmission Date: 20220720
  Serious: Yes (Other)
  Sender: FDA-Public Use
  Company Number: CN-PFIZER INC-202200598435

PATIENT
  Age: 73 Year
  Sex: Male

DRUGS (1)
  1. XALKORI [Suspect]
     Active Substance: CRIZOTINIB
     Indication: Lung adenocarcinoma
     Dosage: 250 MG, 2X/DAY
     Route: 048
     Dates: start: 202005

REACTIONS (14)
  - Nephrolithiasis [Recovered/Resolved]
  - Condition aggravated [Recovered/Resolved]
  - Psoas abscess [Recovered/Resolved]
  - Dysgeusia [Unknown]
  - Decreased appetite [Recovering/Resolving]
  - Drug hypersensitivity [Unknown]
  - Dermatitis [Recovered/Resolved]
  - Neoplasm progression [Recovered/Resolved]
  - General physical health deterioration [Unknown]
  - Asthma [Unknown]
  - Fatigue [Unknown]
  - Asthenia [Unknown]
  - Immune system disorder [Unknown]
  - Weight decreased [Unknown]

NARRATIVE: CASE EVENT DATE: 20211201
